FAERS Safety Report 19245806 (Version 1)
Quarter: 2021Q2

REPORT INFORMATION
  Report Type: Spontaneous
  Country: US (occurrence: US)
  Receive Date: 20210511
  Receipt Date: 20210511
  Transmission Date: 20210717
  Serious: Yes (Other)
  Sender: FDA-Public Use
  Company Number: US-ABBVIE-21K-163-3892804-00

PATIENT
  Age: 57 Year
  Sex: Female

DRUGS (1)
  1. HUMIRA [Suspect]
     Active Substance: ADALIMUMAB
     Indication: RHEUMATOID ARTHRITIS
     Route: 058

REACTIONS (6)
  - Wrong technique in product usage process [Recovered/Resolved]
  - Joint surgery [Unknown]
  - Arthralgia [Recovering/Resolving]
  - Incorrect route of product administration [Unknown]
  - Surgery [Unknown]
  - Joint surgery [Unknown]

NARRATIVE: CASE EVENT DATE: 202011
